FAERS Safety Report 7052235-X (Version None)
Quarter: 2010Q4

REPORT INFORMATION
  Report Type: 
  Country: None (occurrence: None)
  Receive Date: 20101018
  Receipt Date: 20101018
  Transmission Date: 20110411
  Serious: Yes (Other)
  Sender: FDA-Public Use
  Company Number: None

PATIENT
  Age: 53 Year
  Sex: Female
  Weight: 58.9676 kg

DRUGS (2)
  1. PLAQUENIL [Suspect]
     Indication: FIBROMYALGIA
     Dosage: 1 TABLET EVERY 12 HOURS PO
     Route: 048
     Dates: start: 20100920, end: 20101013
  2. PLAQUENIL [Suspect]
     Indication: RHEUMATOID ARTHRITIS
     Dosage: 1 TABLET EVERY 12 HOURS PO
     Route: 048
     Dates: start: 20100920, end: 20101013

REACTIONS (5)
  - CRYING [None]
  - DISSOCIATION [None]
  - FATIGUE [None]
  - MENTAL IMPAIRMENT [None]
  - MOBILITY DECREASED [None]
